FAERS Safety Report 8123375-9 (Version None)
Quarter: 2012Q1

REPORT INFORMATION
  Report Type: 
  Country: None (occurrence: None)
  Receive Date: 20120208
  Receipt Date: 20120206
  Transmission Date: 20120608
  Serious: No
  Sender: FDA-Public Use
  Company Number: US-PFIZER INC-2011301266

PATIENT
  Sex: Male
  Weight: 78.458 kg

DRUGS (3)
  1. NICOTROL [Suspect]
     Dosage: 60 MG, 1X/DAY
  2. NICOTROL [Suspect]
     Indication: SMOKING CESSATION THERAPY
     Dosage: UNK, DAILY
     Route: 045
     Dates: start: 20090101
  3. NICOTROL [Suspect]
     Dosage: MORE THAN 40MG PER DAY (EXACT DOSE UNKNOWN)
     Route: 045
     Dates: start: 20110101

REACTIONS (2)
  - BLOOD CHOLESTEROL INCREASED [None]
  - INCORRECT DOSE ADMINISTERED [None]
